FAERS Safety Report 8362985-0 (Version None)
Quarter: 2012Q2

REPORT INFORMATION
  Report Type: 
  Country: None (occurrence: None)
  Receive Date: 20120516
  Receipt Date: 20120511
  Transmission Date: 20120825
  Serious: Yes (Hospitalization)
  Sender: FDA-Public Use
  Company Number: CL-BAYER-2012-043206

PATIENT
  Age: 65 Year
  Sex: Male
  Weight: 82 kg

DRUGS (24)
  1. DICLO [DICLOFENAC SODIUM] [Concomitant]
     Indication: OROPHARYNGEAL PAIN
     Dosage: 500 MG
     Dates: start: 20100924, end: 20101119
  2. METOCLOPRAMIDE [Concomitant]
     Indication: ABDOMINAL DISTENSION
     Dosage: 10 MG
     Dates: start: 20101119, end: 20101121
  3. MILK OF MAGNESIA TAB [Concomitant]
     Indication: ABDOMINAL DISTENSION
     Dosage: 2 CAPS, UNK
     Dates: start: 20101119, end: 20101121
  4. OPTIRAY 160 [Concomitant]
     Indication: DIAGNOSTIC PROCEDURE
     Dosage: 100 ML PER PROCEDURE
     Dates: start: 20101112, end: 20120410
  5. CLOXACILLIN SODIUM [Concomitant]
     Indication: SKIN INFECTION
     Dosage: 1000 MG, QD
     Dates: start: 20110607, end: 20110615
  6. LOPERAMIDE [Concomitant]
     Indication: DIARRHOEA
     Dosage: 2 MG, PRN
     Dates: start: 20101229
  7. FAMOTIDINE [Concomitant]
     Indication: GASTROINTESTINAL DISORDER
     Dosage: 40 MG, QD
     Dates: start: 20101229
  8. ENALAPRIL MALEATE [Concomitant]
     Dosage: 40 MG, QD
     Dates: start: 20110903
  9. ACETAMINOPHEN [Concomitant]
     Indication: HEADACHE
     Dosage: 1 GR
     Dates: start: 20101126, end: 20101130
  10. PREDNISONE [Concomitant]
     Indication: DIAGNOSTIC PROCEDURE
     Dosage: 20 MG PER PROCEDURE
     Dates: start: 20101112, end: 20120410
  11. TAMSULOSIN HCL [Concomitant]
     Indication: PROSTATISM
     Dosage: 1 COMP.QD
     Dates: start: 20110324, end: 20110402
  12. GLAFORNIL [Concomitant]
     Indication: DIABETES MELLITUS
     Dosage: 750 MG
     Dates: start: 20080701, end: 20110131
  13. GLAFORNIL [Concomitant]
     Dosage: 500 MG
     Dates: start: 20110201
  14. CHLORDIAZEPOXIDE [Concomitant]
     Indication: ABDOMINAL DISTENSION
     Dosage: 10 MG
     Dates: start: 20101119, end: 20101121
  15. BLINDED SORAFENIB (RAF KINASE INHIBITOR) [Suspect]
     Indication: HEPATIC NEOPLASM MALIGNANT
     Dosage: 150 MG/DAY
     Route: 048
     Dates: start: 20120402, end: 20120510
  16. OMEPRAZOLE [Concomitant]
     Indication: GASTROINTESTINAL DISORDER
     Dosage: 10 MG
     Dates: start: 19980101, end: 20101104
  17. LOPERAMIDE [Concomitant]
     Dosage: 6 MG, QD
     Dates: start: 20110127, end: 20110908
  18. SORAFENIB (RAF KINASE INHIBITOR) [Suspect]
     Indication: HEPATIC NEOPLASM MALIGNANT
     Dosage: 400 MG, BID
     Route: 048
     Dates: start: 20120402, end: 20120510
  19. ENALAPRIL MALEATE [Concomitant]
     Indication: HYPERTENSION
     Dosage: 20 MG
     Dates: start: 20010301, end: 20110902
  20. DOMPERIDONE [Concomitant]
     Indication: GASTROINTESTINAL DISORDER
     Dosage: 30 MG/SOS
     Dates: start: 20101115, end: 20101203
  21. DIMETICONE [Concomitant]
     Indication: ABDOMINAL DISTENSION
     Dosage: 200 MG
     Dates: start: 20101119, end: 20101121
  22. LOPERAMIDE [Concomitant]
     Indication: PROPHYLAXIS AGAINST DIARRHOEA
     Dosage: 2 MG
     Dates: start: 20110118, end: 20111020
  23. DINAFLEX [Concomitant]
     Indication: ARTHRITIS
     Dosage: 1 PILL, UNK
     Dates: start: 20110726, end: 20110928
  24. FERROUS CARBONATE [Concomitant]
     Indication: PROPHYLAXIS
     Dosage: 1 COMP
     Dates: start: 20110726

REACTIONS (1)
  - NEPHROTIC SYNDROME [None]
